FAERS Safety Report 9638378 (Version 2)
Quarter: 2013Q4

REPORT INFORMATION
  Report Type: Spontaneous
  Country: CN (occurrence: CN)
  Receive Date: 20131022
  Receipt Date: 20131113
  Transmission Date: 20140711
  Serious: Yes (Hospitalization)
  Sender: FDA-Public Use
  Company Number: CN-GLAXOSMITHKLINE-B0933058A

PATIENT
  Age: 12 Year
  Sex: Male
  Weight: 36 kg

DRUGS (2)
  1. LAMICTAL [Suspect]
     Indication: EPILEPSY
     Dosage: 12.5MG PER DAY
     Route: 048
     Dates: start: 20120313, end: 20120326
  2. SODIUM VALPROATE [Concomitant]
     Indication: EPILEPSY
     Dosage: 500MG PER DAY

REACTIONS (16)
  - Erythema multiforme [Recovered/Resolved]
  - Drug reaction with eosinophilia and systemic symptoms [Recovered/Resolved]
  - Drug eruption [Recovered/Resolved]
  - Pyrexia [Unknown]
  - Nasopharyngitis [Unknown]
  - Rash erythematous [Unknown]
  - Rash pruritic [Unknown]
  - Body temperature increased [Unknown]
  - Oral herpes [Unknown]
  - Herpes virus infection [Unknown]
  - Skin erosion [Unknown]
  - Dermatitis allergic [Unknown]
  - Petechiae [Unknown]
  - Chapped lips [Unknown]
  - Oral mucosa erosion [Unknown]
  - Upper respiratory tract congestion [Unknown]
